FAERS Safety Report 5521241-6 (Version None)
Quarter: 2007Q4

REPORT INFORMATION
  Report Type: 
  Country: None (occurrence: None)
  Receive Date: 20071119
  Receipt Date: 20071114
  Transmission Date: 20080405
  Serious: Yes (Hospitalization)
  Sender: FDA-Public Use
  Company Number: JP-SANOFI-SYNTHELABO-F01200701309

PATIENT
  Sex: Female
  Weight: 42 kg

DRUGS (5)
  1. SELBEX [Concomitant]
     Indication: PROPHYLAXIS
     Dosage: 0.5 G
     Route: 048
     Dates: start: 20070525
  2. LUVOX [Concomitant]
     Indication: DEPRESSION
     Dosage: 25 MG
     Route: 048
     Dates: start: 20070525, end: 20070603
  3. LUVOX [Concomitant]
     Dosage: 37.5 MG
     Route: 048
     Dates: start: 20070604, end: 20070709
  4. LUVOX [Concomitant]
     Dosage: 50 MG
     Route: 048
     Dates: start: 20070710
  5. FK199B/ZOLPIDEM TARTRATE [Suspect]
     Indication: INSOMNIA
     Route: 048
     Dates: start: 20070911, end: 20071005

REACTIONS (1)
  - RIB FRACTURE [None]
